FAERS Safety Report 16349978 (Version 2)
Quarter: 2019Q2

REPORT INFORMATION
  Report Type: Spontaneous
  Country: JP (occurrence: JP)
  Receive Date: 20190523
  Receipt Date: 20190525
  Transmission Date: 20190711
  Serious: Yes (Death, Hospitalization, Other)
  Sender: FDA-Public Use
  Company Number: PHJP2019JP005560

PATIENT
  Age: 77 Year
  Sex: Male
  Weight: 57.45 kg

DRUGS (5)
  1. LANSOPRAZOLE. [Concomitant]
     Active Substance: LANSOPRAZOLE
     Indication: PRODUCT USED FOR UNKNOWN INDICATION
     Dosage: UNK
     Route: 065
  2. VOTRIENT [Suspect]
     Active Substance: PAZOPANIB HYDROCHLORIDE
     Indication: RENAL CANCER
     Dosage: 400 MG, UNK
     Route: 048
     Dates: start: 20160907
  3. VOTRIENT [Suspect]
     Active Substance: PAZOPANIB HYDROCHLORIDE
     Dosage: 600 MG, UNK
     Route: 048
     Dates: start: 20170307, end: 20180717
  4. ENALAPRIL [Concomitant]
     Active Substance: ENALAPRIL
     Indication: PRODUCT USED FOR UNKNOWN INDICATION
     Dosage: UNK
     Route: 065
  5. PRAVASTATIN NA [Concomitant]
     Active Substance: PRAVASTATIN SODIUM
     Indication: PRODUCT USED FOR UNKNOWN INDICATION
     Route: 065

REACTIONS (10)
  - Malignant neoplasm progression [Unknown]
  - Therapeutic product effect incomplete [Unknown]
  - Renal impairment [Unknown]
  - Vomiting [Unknown]
  - Metastases to lung [Unknown]
  - Death [Fatal]
  - Blood pressure decreased [Unknown]
  - Decreased appetite [Unknown]
  - Physical deconditioning [Unknown]
  - Renal cancer [Unknown]

NARRATIVE: CASE EVENT DATE: 20170207
